FAERS Safety Report 4592104-8 (Version None)
Quarter: 2005Q1

REPORT INFORMATION
  Report Type: 
  Country: None (occurrence: None)
  Receive Date: 20050125
  Receipt Date: 20041101
  Transmission Date: 20050727
  Serious: No
  Sender: FDA-Public Use
  Company Number: USA040875520

PATIENT
  Age: 81 Year
  Sex: Female

DRUGS (3)
  1. FORTEO [Suspect]
     Indication: OSTEOPOROSIS
     Dosage: 20 UG DAY
     Dates: start: 20040601
  2. PROTONIX [Concomitant]
  3. TUMS (CALCIUM CARBONATE) [Concomitant]

REACTIONS (7)
  - ABDOMINAL PAIN UPPER [None]
  - BACK PAIN [None]
  - BLOOD POTASSIUM INCREASED [None]
  - BONE PAIN [None]
  - HEADACHE [None]
  - NAUSEA [None]
  - PAIN [None]
